FAERS Safety Report 15367309 (Version 1)
Quarter: 2018Q3

REPORT INFORMATION
  Report Type: Spontaneous
  Country: IT (occurrence: IT)
  Receive Date: 20180910
  Receipt Date: 20180910
  Transmission Date: 20181010
  Serious: Yes (Other)
  Sender: FDA-Public Use
  Company Number: IT-SA-2018SA147889

PATIENT
  Age: 37 Year
  Sex: Female

DRUGS (10)
  1. FLUOROURACIL. [Suspect]
     Active Substance: FLUOROURACIL
     Indication: ADENOCARCINOMA
     Dosage: UNK UNK, QCY
  2. FLUOROURACIL. [Suspect]
     Active Substance: FLUOROURACIL
     Dosage: UNK
  3. IRINOTECAN [Suspect]
     Active Substance: IRINOTECAN
     Indication: ADENOCARCINOMA
  4. BEVACIZUMAB. [Suspect]
     Active Substance: BEVACIZUMAB
     Indication: ADENOCARCINOMA
     Dosage: UNK UNK, QCY
  5. FOLINIC ACID [Suspect]
     Active Substance: LEUCOVORIN
     Dosage: UNK, QCY
  6. OXALIPLATIN. [Suspect]
     Active Substance: OXALIPLATIN
     Indication: ADENOCARCINOMA
     Dosage: UNK UNK, QCY
  7. OXALIPLATIN. [Suspect]
     Active Substance: OXALIPLATIN
     Dosage: UNK
  8. CAPECITABINE. [Suspect]
     Active Substance: CAPECITABINE
     Indication: ADENOCARCINOMA
  9. BEVACIZUMAB. [Suspect]
     Active Substance: BEVACIZUMAB
     Dosage: UNK
  10. FOLINIC ACID [Suspect]
     Active Substance: LEUCOVORIN
     Dosage: UNK UNK, QCY

REACTIONS (5)
  - Therapeutic response decreased [Unknown]
  - Hemiparesis [Recovered/Resolved]
  - Hemianaesthesia [Recovered/Resolved]
  - Paraesthesia [Recovered/Resolved]
  - Drug ineffective [Unknown]
